FAERS Safety Report 13689810 (Version 3)
Quarter: 2017Q3

REPORT INFORMATION
  Report Type: Spontaneous
  Country: US (occurrence: US)
  Receive Date: 20170626
  Receipt Date: 20170918
  Transmission Date: 20171127
  Serious: Yes (Hospitalization)
  Sender: FDA-Public Use
  Company Number: US-PFIZER INC-2017274208

PATIENT
  Age: 61 Year
  Sex: Male
  Weight: 84.35 kg

DRUGS (2)
  1. IBUPROFEN. [Concomitant]
     Active Substance: IBUPROFEN
     Indication: PAIN
     Dosage: 800 MG, AS NEEDED (ONCE OR TWICE WEEKLY)
  2. VIAGRA [Suspect]
     Active Substance: SILDENAFIL CITRATE
     Indication: SEXUAL DYSFUNCTION
     Dosage: 100 MG, AS NEEDED ((TWICE A WEEK OR MORE)
     Dates: end: 201612

REACTIONS (8)
  - Nausea [Recovered/Resolved]
  - Hypertension [Unknown]
  - Drug ineffective [Not Recovered/Not Resolved]
  - Feeling abnormal [Recovered/Resolved]
  - Euphoric mood [Recovered/Resolved]
  - Blood testosterone decreased [Not Recovered/Not Resolved]
  - Expired product administered [Unknown]
  - Flushing [Recovered/Resolved]
